FAERS Safety Report 6962217-1 (Version None)
Quarter: 2010Q3

REPORT INFORMATION
  Report Type: 
  Country: None (occurrence: None)
  Receive Date: 20100901
  Receipt Date: 20100901
  Transmission Date: 20110219
  Serious: No
  Sender: FDA-Public Use
  Company Number: None

PATIENT
  Age: 63 Year
  Sex: Male
  Weight: 96 kg

DRUGS (1)
  1. EVEROLIMUS [Suspect]
     Indication: RENAL CELL CARCINOMA
     Dosage: 10 MG EVERY DAY PO
     Route: 048
     Dates: start: 20091218, end: 20100319

REACTIONS (3)
  - HYPERCHOLESTEROLAEMIA [None]
  - HYPERGLYCAEMIA [None]
  - HYPERTRIGLYCERIDAEMIA [None]
